FAERS Safety Report 5363727-3 (Version None)
Quarter: 2007Q2

REPORT INFORMATION
  Report Type: 
  Country: None (occurrence: None)
  Receive Date: 20070618
  Receipt Date: 20070618
  Transmission Date: 20071010
  Serious: Yes (Other)
  Sender: FDA-Public Use
  Company Number: None

PATIENT
  Age: 83 Year
  Sex: Female

DRUGS (1)
  1. PHOSPHOSODA FLAVOR NOT SPECIFIED [Suspect]
     Indication: COLONOSCOPY
     Dosage: 45 ML;X1;PO
     Route: 048
     Dates: start: 20040826, end: 20040826

REACTIONS (8)
  - ANXIETY [None]
  - ASTHENIA [None]
  - DIARRHOEA [None]
  - NAUSEA [None]
  - RENAL FAILURE ACUTE [None]
  - RENAL INJURY [None]
  - URINE OUTPUT DECREASED [None]
  - VOMITING [None]
